FAERS Safety Report 11599155 (Version 1)
Quarter: 2015Q4

REPORT INFORMATION
  Report Type: Spontaneous
  Country: US (occurrence: US)
  Receive Date: 20151006
  Receipt Date: 20151006
  Transmission Date: 20160304
  Serious: Yes (Death, Hospitalization)
  Sender: FDA-Public Use
  Company Number: US-MYLANLABS-2015M1033626

PATIENT

DRUGS (2)
  1. LIDOCAINE. [Suspect]
     Active Substance: LIDOCAINE
     Indication: STOMATITIS
     Dosage: 2%
     Route: 048
  2. LIDOCAINE. [Suspect]
     Active Substance: LIDOCAINE
     Dosage: CONSUMED UP TO 2G (49MG/KG) OF 2% VISCOUS LIDOCAINE FROM A 100 ML BOTTLE
     Route: 048

REACTIONS (5)
  - Brain death [Fatal]
  - Toxicity to various agents [Fatal]
  - Cardiac arrest [Unknown]
  - Intentional overdose [Fatal]
  - Seizure [Unknown]
